FAERS Safety Report 16564651 (Version 1)
Quarter: 2019Q3

REPORT INFORMATION
  Report Type: Spontaneous
  Country: US (occurrence: US)
  Receive Date: 20190530
  Receipt Date: 20190530
  Transmission Date: 20191004
  Serious: Yes (Hospitalization)
  Sender: FDA-Public Use
  Company Number: None

PATIENT
  Age: 56 Year
  Sex: Female

DRUGS (2)
  1. NEORAL [Suspect]
     Active Substance: CYCLOSPORINE
     Indication: RENAL TRANSPLANT
     Dosage: ?          OTHER FREQUENCY:3 BID;?
     Route: 048
     Dates: start: 20190212
  2. NEORAL [Suspect]
     Active Substance: CYCLOSPORINE
     Indication: RENAL TRANSPLANT
     Dosage: ?          OTHER FREQUENCY:3 BID;?
     Route: 048
     Dates: start: 20190212

REACTIONS (2)
  - Dehydration [None]
  - Viral infection [None]

NARRATIVE: CASE EVENT DATE: 20190512
